FAERS Safety Report 5465456-4 (Version None)
Quarter: 2007Q3

REPORT INFORMATION
  Report Type: 
  Country: None (occurrence: None)
  Receive Date: 20070920
  Receipt Date: 20070920
  Transmission Date: 20080115
  Serious: No
  Sender: FDA-Public Use
  Company Number: None

PATIENT
  Sex: Female
  Weight: 102.0593 kg

DRUGS (3)
  1. VANCOMYCIN [Suspect]
     Indication: CELLULITIS
     Dosage: 1.5 GRAM DAILY IV
     Route: 042
     Dates: start: 20070908, end: 20070917
  2. VANCOMYCIN [Suspect]
     Indication: STAPHYLOCOCCAL INFECTION
     Dosage: 1.5 GRAM DAILY IV
     Route: 042
     Dates: start: 20070908, end: 20070917
  3. VANCOMYCIN [Suspect]

REACTIONS (6)
  - BODY TEMPERATURE INCREASED [None]
  - FATIGUE [None]
  - MALAISE [None]
  - NAUSEA [None]
  - VOMITING [None]
  - WHITE BLOOD CELL COUNT DECREASED [None]
